FAERS Safety Report 8316751-2 (Version None)
Quarter: 2012Q2

REPORT INFORMATION
  Report Type: 
  Country: None (occurrence: None)
  Receive Date: 20120425
  Receipt Date: 20120412
  Transmission Date: 20120825
  Serious: Yes (Hospitalization, Disabling, Other)
  Sender: FDA-Public Use
  Company Number: AUR-APL-2012-01834

PATIENT
  Age: 61 Year
  Sex: Female

DRUGS (1)
  1. GABAPENTIN [Suspect]
     Indication: NEURALGIA
     Dosage: 3 DOSAGE FORMS (1 DOSAGE FORMS, 3 IN 1 D)
     Dates: end: 20120313

REACTIONS (10)
  - BACK PAIN [None]
  - NEPHROLITHIASIS [None]
  - HAEMANGIOMA OF LIVER [None]
  - PLEURAL FIBROSIS [None]
  - CHOLELITHIASIS [None]
  - PRODUCT SUBSTITUTION ISSUE [None]
  - ABDOMINAL PAIN UPPER [None]
  - RENAL CYST [None]
  - DIARRHOEA [None]
  - NO THERAPEUTIC RESPONSE [None]
